FAERS Safety Report 22069552 (Version 1)
Quarter: 2023Q1

REPORT INFORMATION
  Report Type: Spontaneous
  Country: US (occurrence: US)
  Receive Date: 20230307
  Receipt Date: 20230307
  Transmission Date: 20230417
  Serious: No
  Sender: FDA-Public Use
  Company Number: US-SA-SAC20230303001232

PATIENT
  Age: 14 Year
  Sex: Female

DRUGS (7)
  1. DUPIXENT [Suspect]
     Active Substance: DUPILUMAB
     Indication: Dermatitis atopic
     Dosage: 200 MG, QOW
     Route: 058
     Dates: start: 20221122
  2. BENADRYL [Concomitant]
     Active Substance: DIPHENHYDRAMINE HYDROCHLORIDE
  3. ELIDEL [Concomitant]
     Active Substance: PIMECROLIMUS
  4. EUCRISA [Concomitant]
     Active Substance: CRISABOROLE
  5. TYLENOL [Concomitant]
     Active Substance: ACETAMINOPHEN
  6. ZYRTEC [Concomitant]
     Active Substance: CETIRIZINE HYDROCHLORIDE
  7. BETAMETHASONE DIPROPIONATE [Concomitant]
     Active Substance: BETAMETHASONE DIPROPIONATE

REACTIONS (2)
  - Discomfort [Unknown]
  - Dermatitis atopic [Not Recovered/Not Resolved]
